FAERS Safety Report 19692703 (Version 1)
Quarter: 2021Q3

REPORT INFORMATION
  Report Type: Report from Study
  Country: HR (occurrence: HR)
  Receive Date: 20210812
  Receipt Date: 20210812
  Transmission Date: 20211014
  Serious: Yes (Hospitalization)
  Sender: FDA-Public Use
  Company Number: HR-TEVA-2021-HR-1940105

PATIENT
  Age: 45 Year
  Sex: Female

DRUGS (5)
  1. CYCLOPHOSPHAMIDE. [Suspect]
     Active Substance: CYCLOPHOSPHAMIDE
     Indication: B-CELL LYMPHOMA
     Dosage: RECEIVED IN A R?CHOEP14 BIWEEKLY REGIMEN SCHEDULED FOR A TOTAL OF 8CYCLES
     Route: 065
  2. ETOPOSIDE. [Suspect]
     Active Substance: ETOPOSIDE
     Indication: B-CELL LYMPHOMA
     Dosage: 100 MG/M2 DAILY; RECEIVED 100MG/M2 /DAY OVER 3DAYS/CYCLE IN A R?CHOEP14 BIWEEKLY REGIMEN SCHEDULED F
     Route: 065
  3. DOXORUBICIN [Suspect]
     Active Substance: DOXORUBICIN
     Indication: B-CELL LYMPHOMA
     Dosage: RECEIVED IN A R?CHOEP14 BIWEEKLY REGIMEN SCHEDULED FOR A TOTAL OF 8CYCLES
     Route: 065
  4. VINCRISTINE [Suspect]
     Active Substance: VINCRISTINE
     Indication: B-CELL LYMPHOMA
     Dosage: RECEIVED IN A R?CHOEP14 BIWEEKLY REGIMEN SCHEDULED FOR A TOTAL OF 8CYCLES
     Route: 065
  5. RITUXIMAB. [Suspect]
     Active Substance: RITUXIMAB
     Indication: B-CELL LYMPHOMA
     Dosage: RECEIVED IN A R?CHOEP14 BIWEEKLY REGIMEN SCHEDULED FOR A TOTAL OF 8CYCLES
     Route: 065

REACTIONS (3)
  - Arrhythmia supraventricular [Recovering/Resolving]
  - Ventricular arrhythmia [Recovering/Resolving]
  - Cardiac failure congestive [Not Recovered/Not Resolved]
